FAERS Safety Report 14041531 (Version 5)
Quarter: 2017Q4

REPORT INFORMATION
  Report Type: Spontaneous
  Country: KR (occurrence: KR)
  Receive Date: 20171004
  Receipt Date: 20171127
  Transmission Date: 20180321
  Serious: Yes (Hospitalization, Other)
  Sender: FDA-Public Use
  Company Number: KR-009507513-1710KOR001124

PATIENT
  Age: 58 Year
  Sex: Male

DRUGS (13)
  1. EPINEPHRINE. [Concomitant]
     Active Substance: EPINEPHRINE
     Indication: SHOCK
     Dosage: STRENGTH 1MG/1ML, QD
     Route: 042
     Dates: start: 20170530, end: 20170530
  2. TAZOPERAN [Concomitant]
     Indication: INFECTION PROPHYLAXIS
     Dosage: 4.5 G, TID
     Route: 042
     Dates: start: 20170530, end: 20170611
  3. TEICONIN [Concomitant]
     Indication: INFECTION PROPHYLAXIS
     Dosage: 400 MG, QD
     Route: 042
     Dates: start: 20170603, end: 20170606
  4. TEICONIN [Concomitant]
     Dosage: 400 MG, QD
     Route: 042
     Dates: start: 20170611, end: 20170614
  5. SODIUM BICARBONATE. [Concomitant]
     Active Substance: SODIUM BICARBONATE
     Indication: NEOPLASM PROPHYLAXIS
     Dosage: 3 DF, SUPPLEMENT AS NECESSARY
     Route: 042
     Dates: start: 20170602, end: 20170610
  6. CELEBREX [Concomitant]
     Active Substance: CELECOXIB
     Indication: GOUT
     Dosage: 200 MG, BID
     Route: 048
     Dates: start: 20170604
  7. NOXAFIL [Suspect]
     Active Substance: POSACONAZOLE
     Indication: ANTIFUNGAL PROPHYLAXIS
     Dosage: 300 MG, BID
     Route: 048
     Dates: start: 20170605, end: 20170605
  8. CYTARABINE. [Concomitant]
     Active Substance: CYTARABINE
     Indication: MYELODYSPLASTIC SYNDROME
     Dosage: 199 MG, QD
     Route: 042
     Dates: start: 20170602, end: 20170608
  9. MEROPEN [Concomitant]
     Active Substance: MEROPENEM
     Indication: INFECTION PROPHYLAXIS
     Dosage: 1 G, TID
     Route: 042
     Dates: start: 20170603, end: 20170618
  10. NOXAFIL [Suspect]
     Active Substance: POSACONAZOLE
     Dosage: 300 MG, QD
     Route: 048
     Dates: start: 20170606, end: 20170625
  11. DAUNOCIN [Concomitant]
     Active Substance: DAUNORUBICIN HYDROCHLORIDE
     Indication: MYELODYSPLASTIC SYNDROME
     Dosage: 119.4 MG, QD
     Route: 042
     Dates: start: 20170602, end: 20170604
  12. CEFTRIAXONE. [Concomitant]
     Active Substance: CEFTRIAXONE
     Indication: SHOCK
     Dosage: 2 G, QD
     Route: 042
     Dates: start: 20170527, end: 20170529
  13. TAZOPERAN [Concomitant]
     Dosage: 4.5 G, TID
     Route: 042
     Dates: start: 20170619, end: 20170706

REACTIONS (9)
  - Hypokalaemia [Recovered/Resolved]
  - Pneumonia fungal [Recovered/Resolved]
  - Hypophosphataemia [Recovered/Resolved]
  - Oedema peripheral [Recovered/Resolved]
  - Pulmonary oedema [Recovered/Resolved]
  - Hypomagnesaemia [Recovered/Resolved]
  - Pleural effusion [Recovered/Resolved]
  - Pyrexia [Recovered/Resolved]
  - Stomatitis [Recovered/Resolved]

NARRATIVE: CASE EVENT DATE: 20170606
